FAERS Safety Report 4744684-7 (Version None)
Quarter: 2005Q3

REPORT INFORMATION
  Report Type: 
  Country: None (occurrence: None)
  Receive Date: 20050815
  Receipt Date: 20050804
  Transmission Date: 20060218
  Serious: Yes (Other)
  Sender: FDA-Public Use
  Company Number: CA-JNJFOC-20050604761

PATIENT
  Sex: Female

DRUGS (13)
  1. REMICADE [Suspect]
  2. REMICADE [Suspect]
  3. REMICADE [Suspect]
     Indication: RHEUMATOID ARTHRITIS
  4. METHOTREXATE [Concomitant]
     Route: 058
  5. ENTROPHEN [Concomitant]
  6. ENTROPHEN [Concomitant]
  7. PROPAFENORE [Concomitant]
  8. THYROXINE [Concomitant]
  9. PARIET [Concomitant]
  10. CALCIUM GLUCONATE [Concomitant]
  11. VITAMIN D [Concomitant]
  12. FOLIC ACID [Concomitant]
  13. DIGOXIN [Concomitant]

REACTIONS (2)
  - ANKLE OPERATION [None]
  - STAPHYLOCOCCAL OSTEOMYELITIS [None]
